FAERS Safety Report 9436448 (Version 1)
Quarter: 2013Q3

REPORT INFORMATION
  Report Type: Spontaneous
  Country: US (occurrence: US)
  Receive Date: 20130802
  Receipt Date: 20130802
  Transmission Date: 20140515
  Serious: No
  Sender: FDA-Public Use
  Company Number: US-009507513-1308USA000513

PATIENT
  Age: 25 Year
  Sex: Female
  Weight: 54.42 kg

DRUGS (2)
  1. IMPLANON [Suspect]
     Indication: CONTRACEPTION
     Dosage: 1 ROD UP TO 3 YEARS
     Route: 059
     Dates: start: 201109
  2. TYLENOL [Concomitant]

REACTIONS (6)
  - Swelling [Not Recovered/Not Resolved]
  - Pruritus [Not Recovered/Not Resolved]
  - Device kink [Unknown]
  - Erythema [Not Recovered/Not Resolved]
  - Irritability [Not Recovered/Not Resolved]
  - Injury [Unknown]
